FAERS Safety Report 15579142 (Version 1)
Quarter: 2018Q4

REPORT INFORMATION
  Report Type: Spontaneous
  Country: US (occurrence: US)
  Receive Date: 20181102
  Receipt Date: 20181102
  Transmission Date: 20190205
  Serious: No
  Sender: FDA-Public Use
  Company Number: US-SA-2018SA297483

PATIENT
  Age: 74 Year
  Sex: Male

DRUGS (1)
  1. ACT DRY MOUTH ANTICAVITY FLUORIDE [Suspect]
     Active Substance: SODIUM FLUORIDE
     Indication: DRY MOUTH
     Dosage: UNK
     Route: 048
     Dates: start: 20181021

REACTIONS (2)
  - Feeling abnormal [Unknown]
  - Dry mouth [Unknown]

NARRATIVE: CASE EVENT DATE: 20181021
